FAERS Safety Report 5735942-8 (Version None)
Quarter: 2008Q2

REPORT INFORMATION
  Report Type: 
  Country: None (occurrence: None)
  Receive Date: 20080509
  Receipt Date: 20080426
  Transmission Date: 20081010
  Serious: Yes (Death)
  Sender: FDA-Public Use
  Company Number: 2008PL000055

PATIENT
  Sex: Female

DRUGS (1)
  1. LOTRONEX [Suspect]
     Dosage: PO
     Route: 048

REACTIONS (1)
  - ADVERSE EVENT [None]
